FAERS Safety Report 4899372-3 (Version None)
Quarter: 2006Q1

REPORT INFORMATION
  Report Type: 
  Country: None (occurrence: None)
  Receive Date: 20060131
  Receipt Date: 20060118
  Transmission Date: 20060701
  Serious: Yes (Hospitalization)
  Sender: FDA-Public Use
  Company Number: 2006011078

PATIENT
  Age: 24 Year
  Sex: Male

DRUGS (4)
  1. UNASYN [Suspect]
     Indication: CELLULITIS
     Dosage: 3 GRAM, INTRAVENOUS
     Route: 042
     Dates: start: 20040515, end: 20040515
  2. AMOXICILLIN [Suspect]
     Indication: CELLULITIS
     Dosage: 750 MG, ORAL
     Route: 048
     Dates: start: 20040515, end: 20040517
  3. OTHER COLD COMBINATION PREPARATIONS (OTHER COLD COMBINATION PREPARATIO [Concomitant]
  4. LOXONIN (LOXOPROFEN SODIUM) [Concomitant]

REACTIONS (6)
  - ACUTE GENERALISED EXANTHEMATOUS PUSTULOSIS [None]
  - C-REACTIVE PROTEIN INCREASED [None]
  - CELLULITIS [None]
  - EPSTEIN-BARR VIRUS ANTIBODY POSITIVE [None]
  - LYMPH NODE PAIN [None]
  - PRURITUS [None]
